FAERS Safety Report 17072117 (Version 1)
Quarter: 2019Q4

REPORT INFORMATION
  Report Type: Spontaneous
  Country: US (occurrence: US)
  Receive Date: 20191125
  Receipt Date: 20191125
  Transmission Date: 20200122
  Serious: Yes (Other)
  Sender: FDA-Public Use
  Company Number: US-AKORN PHARMACEUTICALS-2019AKN02215

PATIENT
  Age: 16 Year
  Sex: Female
  Weight: 66 kg

DRUGS (3)
  1. MYORISAN [Suspect]
     Active Substance: ISOTRETINOIN
     Indication: ACNE
     Dosage: 30 MG, 1X/DAY
     Dates: start: 20190715, end: 20191011
  2. SPIRONOLACTONE. [Concomitant]
     Active Substance: SPIRONOLACTONE
  3. ORTHO TRI CYCLEN LO [Concomitant]
     Active Substance: ETHINYL ESTRADIOL\NORGESTIMATE

REACTIONS (4)
  - Idiopathic intracranial hypertension [Recovering/Resolving]
  - Irritability [Recovering/Resolving]
  - Off label use [Recovered/Resolved]
  - Xerosis [Recovering/Resolving]

NARRATIVE: CASE EVENT DATE: 2019
